FAERS Safety Report 21296107 (Version 1)
Quarter: 2022Q3

REPORT INFORMATION
  Report Type: Spontaneous
  Country: US (occurrence: US)
  Receive Date: 20220906
  Receipt Date: 20220906
  Transmission Date: 20221026
  Serious: Yes (Other)
  Sender: FDA-Public Use
  Company Number: US-CELGENE-USA-2016010597

PATIENT
  Age: 18 Year
  Sex: Female
  Weight: 47.17 kg

DRUGS (16)
  1. REVLIMID [Suspect]
     Active Substance: LENALIDOMIDE
     Indication: Behcet^s syndrome
     Dosage: 5 MILLIGRAM, 28 IN 28 DAYS
     Route: 048
     Dates: start: 20150904
  2. REVLIMID [Suspect]
     Active Substance: LENALIDOMIDE
     Dosage: 5 MILLIGRAM, 1 IN 3DAYS
     Route: 048
     Dates: start: 2015
  3. REVLIMID [Suspect]
     Active Substance: LENALIDOMIDE
     Dosage: 2.5MG EVERY DAY
     Route: 048
     Dates: start: 20151120, end: 20151231
  4. LORATADINE [Concomitant]
     Active Substance: LORATADINE
     Indication: Multiple allergies
     Route: 048
     Dates: start: 201511, end: 20160105
  5. FLUOXETINE [Concomitant]
     Active Substance: FLUOXETINE HYDROCHLORIDE
     Indication: Depression
     Route: 048
     Dates: start: 2014
  6. COLCHICINE [Concomitant]
     Active Substance: COLCHICINE
     Indication: Genital ulceration
     Dosage: 0.6 MG
     Route: 048
     Dates: start: 20111118, end: 20160105
  7. COLCHICINE [Concomitant]
     Active Substance: COLCHICINE
     Indication: Mouth ulceration
  8. SERTRALINE [Concomitant]
     Active Substance: SERTRALINE HYDROCHLORIDE
     Indication: Depression
     Dosage: 110 MG
     Route: 048
  9. REMICADE [Concomitant]
     Active Substance: INFLIXIMAB
     Indication: Behcet^s syndrome
     Route: 065
     Dates: end: 20160105
  10. PRILOSEC [Concomitant]
     Active Substance: OMEPRAZOLE MAGNESIUM
     Indication: Product used for unknown indication
     Route: 065
  11. MEASLES-MUMPS-RUBELLA VIRUS VACCINE [Concomitant]
     Active Substance: MEASLES-MUMPS-RUBELLA VIRUS VACCINE
     Indication: Rubella
     Route: 065
  12. Varicella [Concomitant]
     Indication: Product used for unknown indication
     Route: 065
  13. PITOCIN [Concomitant]
     Active Substance: OXYTOCIN
     Indication: Product used for unknown indication
     Route: 065
  14. CYTOTEC [Concomitant]
     Active Substance: MISOPROSTOL
     Indication: Product used for unknown indication
     Dosage: FREQUENCY TEXT: NOT PROVIDED?800 MICROGRAM
     Route: 065
  15. METHERGINE [Concomitant]
     Active Substance: METHYLERGONOVINE MALEATE
     Indication: Product used for unknown indication
     Dosage: FREQUENCY TEXT: NOT PROVIDED?.2 MILLIGRAM
     Route: 030
  16. DILAUDID [Concomitant]
     Active Substance: HYDROMORPHONE HYDROCHLORIDE
     Indication: Pain
     Dosage: FREQUENCY TEXT: NOT PROVIDED?1 MILLIGRAM
     Route: 042

REACTIONS (7)
  - Maternal exposure during pregnancy [Recovered/Resolved]
  - Nausea [Not Recovered/Not Resolved]
  - Dehydration [Not Recovered/Not Resolved]
  - Vaginal haemorrhage [Not Recovered/Not Resolved]
  - Pregnancy on contraceptive [Unknown]
  - Normal newborn [Unknown]
  - Intentional product use issue [Unknown]

NARRATIVE: CASE EVENT DATE: 20151201
